FAERS Safety Report 4963875-3 (Version None)
Quarter: 2006Q1

REPORT INFORMATION
  Report Type: 
  Country: None (occurrence: None)
  Receive Date: 20060330
  Receipt Date: 20060309
  Transmission Date: 20060701
  Serious: Yes (Hospitalization)
  Sender: FDA-Public Use
  Company Number: US200603002699

PATIENT
  Age: 81 Year
  Sex: Male

DRUGS (2)
  1. FORTEO [Suspect]
     Indication: OSTEOPOROSIS
     Dosage: 20 UG
     Dates: start: 20050701
  2. FORTEO (FORETO PEN) PEN, DISPOSABLE [Concomitant]

REACTIONS (8)
  - ATRIAL FIBRILLATION [None]
  - CHOLECYSTITIS [None]
  - CHOLELITHIASIS [None]
  - DIZZINESS [None]
  - GALLBLADDER DISORDER [None]
  - HAEMORRHAGE [None]
  - LIVER DISORDER [None]
  - OEDEMA [None]
